FAERS Safety Report 7895266-X (Version None)
Quarter: 2011Q4

REPORT INFORMATION
  Report Type: 
  Country: None (occurrence: None)
  Receive Date: 20111106
  Receipt Date: 20110824
  Transmission Date: 20120403
  Serious: No
  Sender: FDA-Public Use
  Company Number: US-AMGEN-USASP2011043329

PATIENT
  Age: 55 Year
  Sex: Female

DRUGS (2)
  1. ENBREL [Suspect]
     Indication: RHEUMATOID ARTHRITIS
     Dosage: 50 MG, QWK
     Dates: start: 20101220
  2. TREXALL [Concomitant]
     Dates: start: 20100101

REACTIONS (9)
  - OROPHARYNGEAL PAIN [None]
  - LOCALISED INFECTION [None]
  - CANDIDIASIS [None]
  - DIARRHOEA [None]
  - FATIGUE [None]
  - FUNGAL INFECTION [None]
  - PHARYNGITIS STREPTOCOCCAL [None]
  - PAPULE [None]
  - LIP INFECTION [None]
